FAERS Safety Report 6753441-1 (Version None)
Quarter: 2010Q2

REPORT INFORMATION
  Report Type: 
  Country: None (occurrence: None)
  Receive Date: 20100603
  Receipt Date: 20100524
  Transmission Date: 20101027
  Serious: Yes (Other)
  Sender: FDA-Public Use
  Company Number: US-CELGENEUS-163-20785-10052295

PATIENT
  Sex: Male

DRUGS (3)
  1. THALOMID [Suspect]
     Indication: MULTIPLE MYELOMA
     Route: 048
     Dates: start: 20100107
  2. THALOMID [Suspect]
     Route: 048
     Dates: start: 20090201
  3. THALOMID [Suspect]
     Route: 048
     Dates: start: 20080601

REACTIONS (1)
  - EYE DISORDER [None]
